FAERS Safety Report 9661103 (Version 1)
Quarter: 2013Q4

REPORT INFORMATION
  Report Type: Spontaneous
  Country: DK (occurrence: FR)
  Receive Date: 20131031
  Receipt Date: 20131031
  Transmission Date: 20140711
  Serious: Yes (Hospitalization)
  Sender: FDA-Public Use
  Company Number: FR-FRI-1000050681

PATIENT
  Age: 0 Day
  Sex: Male
  Weight: 2.9 kg

DRUGS (3)
  1. ESCITALOPRAM [Suspect]
     Indication: BIPOLAR DISORDER
     Dosage: 5 MG
     Route: 064
  2. DEPAKOTE [Suspect]
     Indication: BIPOLAR DISORDER
     Dosage: 250 MG
     Route: 064
  3. TERALITHE [Suspect]
     Indication: BIPOLAR DISORDER
     Dosage: 125 MG
     Route: 064

REACTIONS (3)
  - Portal vein thrombosis [Recovered/Resolved]
  - Foetal exposure during pregnancy [Recovered/Resolved]
  - Off label use [Recovered/Resolved]
